FAERS Safety Report 6580518-6 (Version None)
Quarter: 2010Q1

REPORT INFORMATION
  Report Type: 
  Country: None (occurrence: None)
  Receive Date: 20100212
  Receipt Date: 20100203
  Transmission Date: 20100710
  Serious: Yes (Life-Threatening, Hospitalization)
  Sender: FDA-Public Use
  Company Number: JP-ROCHE-683615

PATIENT
  Age: 56 Year
  Sex: Male

DRUGS (3)
  1. XELODA [Suspect]
     Indication: LARGE INTESTINE CARCINOMA
     Dosage: DRUG REPORTED AS; XELODA 300(CAPECITABINE)
     Route: 048
  2. AVASTIN [Concomitant]
     Route: 041
  3. ELPLAT [Concomitant]
     Route: 041

REACTIONS (2)
  - DIARRHOEA [None]
  - RENAL FAILURE ACUTE [None]
